FAERS Safety Report 19639508 (Version 1)
Quarter: 2021Q3

REPORT INFORMATION
  Report Type: Spontaneous
  Country: US (occurrence: US)
  Receive Date: 20210729
  Receipt Date: 20210729
  Transmission Date: 20211014
  Serious: No
  Sender: FDA-Public Use
  Company Number: US-PERRIGO-20US017179

PATIENT
  Sex: Male

DRUGS (1)
  1. MINOXIDIL. [Suspect]
     Active Substance: MINOXIDIL
     Indication: ALOPECIA
     Dosage: UNKNOWN, UNKNOWN
     Route: 061
     Dates: start: 202011, end: 202011

REACTIONS (5)
  - Application site pruritus [Unknown]
  - Application site discharge [Recovered/Resolved]
  - Application site ulcer [Recovered/Resolved]
  - Application site burn [Unknown]
  - Condition aggravated [Unknown]

NARRATIVE: CASE EVENT DATE: 202011
